FAERS Safety Report 8437604-5 (Version None)
Quarter: 2012Q2

REPORT INFORMATION
  Report Type: 
  Country: None (occurrence: None)
  Receive Date: 20120614
  Receipt Date: 20120419
  Transmission Date: 20120825
  Serious: No
  Sender: FDA-Public Use
  Company Number: US-AMGEN-USASP2012024763

PATIENT
  Age: 62 Year
  Sex: Female

DRUGS (7)
  1. ANTIHYPERTENSIVES [Concomitant]
  2. VITAMIN D [Concomitant]
  3. MULTI-VITAMIN [Concomitant]
  4. THYROID THERAPY [Concomitant]
  5. POTASSIUM ACETATE [Concomitant]
  6. PROLIA [Suspect]
     Indication: OSTEOPOROSIS POSTMENOPAUSAL
     Dosage: 60 MG, Q6MO
     Dates: start: 20120105
  7. CALCIUM [Concomitant]

REACTIONS (3)
  - AGEUSIA [None]
  - SINUS CONGESTION [None]
  - ANOSMIA [None]
